FAERS Safety Report 6316194-7 (Version None)
Quarter: 2009Q3

REPORT INFORMATION
  Report Type: 
  Country: None (occurrence: None)
  Receive Date: 20090820
  Receipt Date: 20090811
  Transmission Date: 20100115
  Serious: Yes (Life-Threatening, Hospitalization)
  Sender: FDA-Public Use
  Company Number: US-ABBOTT-09P-163-0588003-00

PATIENT
  Sex: Male
  Weight: 94.3 kg

DRUGS (29)
  1. SYNTHROID [Suspect]
     Indication: HYPOTHYROIDISM
     Route: 048
  2. ALEFACEPT [Suspect]
     Indication: DRUG USE FOR UNKNOWN INDICATION
     Dosage: 1 DAY
     Route: 042
     Dates: start: 20090709, end: 20090709
  3. ALEFACEPT [Suspect]
     Route: 042
     Dates: start: 20090712, end: 20090712
  4. ALEFACEPT [Suspect]
     Route: 058
     Dates: start: 20090716, end: 20090721
  5. PROGRAF [Suspect]
     Indication: DRUG USE FOR UNKNOWN INDICATION
     Route: 048
     Dates: end: 20090719
  6. PROGRAF [Suspect]
     Route: 048
     Dates: start: 20090710
  7. VALCYTE [Suspect]
     Indication: DRUG USE FOR UNKNOWN INDICATION
     Route: 048
  8. PLAVIX [Suspect]
     Indication: DRUG USE FOR UNKNOWN INDICATION
     Route: 048
  9. ASPIRIN [Suspect]
     Indication: DRUG USE FOR UNKNOWN INDICATION
  10. ASPIRIN [Suspect]
  11. BACTRIM [Suspect]
     Indication: URINARY TRACT INFECTION
     Dosage: 1 DF, QOD
     Route: 048
  12. HEPARIN [Suspect]
     Indication: DRUG USE FOR UNKNOWN INDICATION
  13. PREDNISONE [Concomitant]
     Indication: DRUG USE FOR UNKNOWN INDICATION
     Dates: start: 20090710
  14. AMBIEN [Concomitant]
     Indication: DRUG USE FOR UNKNOWN INDICATION
  15. PRILOSEC [Concomitant]
     Indication: DRUG USE FOR UNKNOWN INDICATION
  16. METOPROLOL [Concomitant]
     Indication: DRUG USE FOR UNKNOWN INDICATION
  17. NORVASC [Concomitant]
     Indication: DRUG USE FOR UNKNOWN INDICATION
  18. LANTUS [Concomitant]
     Indication: DRUG USE FOR UNKNOWN INDICATION
  19. CALCIUM CARBONATE [Concomitant]
     Indication: DRUG USE FOR UNKNOWN INDICATION
  20. DILTIAZEM [Concomitant]
     Indication: DRUG USE FOR UNKNOWN INDICATION
  21. FERROUS GLUCONATE [Concomitant]
     Indication: DRUG USE FOR UNKNOWN INDICATION
  22. LABETALOL HCL [Concomitant]
     Indication: DRUG USE FOR UNKNOWN INDICATION
  23. NEPHROCAPS [Concomitant]
     Indication: DRUG USE FOR UNKNOWN INDICATION
  24. RENAGEL [Concomitant]
     Indication: DRUG USE FOR UNKNOWN INDICATION
  25. NOVOLOG [Concomitant]
     Indication: DRUG USE FOR UNKNOWN INDICATION
  26. ROSUVASTATIN CALCIUM [Concomitant]
     Indication: DRUG USE FOR UNKNOWN INDICATION
  27. DILAUDID [Concomitant]
     Indication: DRUG USE FOR UNKNOWN INDICATION
  28. DOPAMINE HCL [Concomitant]
     Indication: DRUG USE FOR UNKNOWN INDICATION
  29. AVAPRO [Concomitant]
     Indication: DRUG USE FOR UNKNOWN INDICATION

REACTIONS (1)
  - THROMBOCYTOPENIA [None]
